FAERS Safety Report 21595081 (Version 2)
Quarter: 2022Q4

REPORT INFORMATION
  Report Type: Spontaneous
  Country: US (occurrence: US)
  Receive Date: 20221115
  Receipt Date: 20221115
  Transmission Date: 20230113
  Serious: No
  Sender: FDA-Public Use
  Company Number: US-AMNEAL PHARMACEUTICALS-2021-AMRX-04299

PATIENT
  Sex: Male

DRUGS (7)
  1. ISOTRETINOIN [Suspect]
     Active Substance: ISOTRETINOIN
     Indication: Acne
     Dosage: UNK
     Route: 048
  2. ISOTRETINOIN [Suspect]
     Active Substance: ISOTRETINOIN
     Dosage: 2 CAPSULES, DAILY
     Route: 048
     Dates: start: 20210915, end: 20211013
  3. BENZOYL PEROXIDE [Concomitant]
     Active Substance: BENZOYL PEROXIDE
     Indication: Acne
     Dosage: UNK
     Route: 061
     Dates: end: 202108
  4. CLEOCIN T [Concomitant]
     Active Substance: CLINDAMYCIN PHOSPHATE
     Indication: Acne
     Dosage: UNK, APPLY ON ACNE IN MORNING
     Route: 061
     Dates: end: 202108
  5. VIBRAMYCIN [DOXYCYCLINE HYCLATE] [Concomitant]
     Indication: Acne
     Dosage: 1 CAPSULES, 2X/DAY WITH MEALS
     Route: 048
     Dates: end: 202108
  6. RETIN-A [Concomitant]
     Active Substance: TRETINOIN
     Indication: Acne
     Dosage: UNK, 0.025%, APPLY ON FACE AT BEDTIME
     Route: 061
  7. RETIN-A [Concomitant]
     Active Substance: TRETINOIN
     Dosage: UNK, 0.05%, APPLY ON FACE AT BEDTIME EVERY OTHER DAY
     Route: 061
     Dates: end: 202108

REACTIONS (6)
  - Influenza like illness [Unknown]
  - Abdominal discomfort [Unknown]
  - Muscle spasms [Unknown]
  - Leukopenia [Unknown]
  - Illness [Unknown]
  - Diarrhoea [Unknown]

NARRATIVE: CASE EVENT DATE: 20210101
